FAERS Safety Report 8919796 (Version 2)
Quarter: 2012Q4

REPORT INFORMATION
  Report Type: 
  Country: JP (occurrence: JP)
  Receive Date: 20121121
  Receipt Date: 20121130
  Transmission Date: 20130627
  Serious: Yes (Hospitalization)
  Sender: FDA-Public Use
  Company Number: JP-ELI_LILLY_AND_COMPANY-JP201211004660

PATIENT
  Age: 83 Year
  Sex: Female
  Weight: 40 kg

DRUGS (10)
  1. CYMBALTA [Suspect]
     Indication: POST HERPETIC NEURALGIA
     Dosage: 20 mg, qd
     Route: 048
     Dates: start: 20120918, end: 20120920
  2. TRAMADOL HYDROCHLORIDE AND ACETAMINOPHEN [Concomitant]
     Indication: POST HERPETIC NEURALGIA
     Dosage: 1 DF, tid
     Route: 048
  3. TRAMADOL HYDROCHLORIDE AND ACETAMINOPHEN [Concomitant]
     Dosage: UNK UNK, prn
     Route: 048
     Dates: start: 20120920, end: 20120926
  4. LYRICA [Concomitant]
     Indication: POST HERPETIC NEURALGIA
     Dosage: 75 mg, bid
     Route: 048
     Dates: start: 20120828, end: 20120904
  5. LYRICA [Concomitant]
     Dosage: 75 mg, bid
     Route: 048
     Dates: start: 20120908, end: 20120919
  6. LYRICA [Concomitant]
     Dosage: 150 mg, bid
     Route: 048
     Dates: start: 20120920, end: 20120922
  7. PREDONINE [Concomitant]
     Indication: RHEUMATOID ARTHRITIS
     Dosage: 5 mg, qd
     Route: 048
  8. BROTIZOLAM [Concomitant]
     Indication: INSOMNIA
     Dosage: 0.25 mg, prn
     Route: 048
     Dates: start: 20120909, end: 20120920
  9. VOLTAREN                           /00372302/ [Concomitant]
     Indication: POST HERPETIC NEURALGIA
     Dosage: 25 mg, prn
     Route: 054
     Dates: start: 20120909, end: 20120920
  10. SENNOSIDE [Concomitant]
     Indication: CONSTIPATION
     Dosage: 12 mg, prn
     Route: 048
     Dates: start: 20120909, end: 20120920

REACTIONS (3)
  - Hyponatraemia [Recovered/Resolved]
  - Hepatitis [Recovering/Resolving]
  - Off label use [Recovered/Resolved]
